FAERS Safety Report 12893104 (Version 2)
Quarter: 2016Q4

REPORT INFORMATION
  Report Type: Spontaneous
  Country: TW (occurrence: TW)
  Receive Date: 20161028
  Receipt Date: 20161130
  Transmission Date: 20170207
  Serious: Yes (Hospitalization, Other)
  Sender: FDA-Public Use
  Company Number: TW-PFIZER INC-2016496501

PATIENT
  Age: 48 Year
  Sex: Male

DRUGS (4)
  1. ERAXIS [Suspect]
     Active Substance: ANIDULAFUNGIN
     Indication: PROPHYLAXIS
  2. TYGACIL [Suspect]
     Active Substance: TIGECYCLINE
     Indication: PROPHYLAXIS
  3. ERAXIS [Suspect]
     Active Substance: ANIDULAFUNGIN
     Indication: FUNGAL INFECTION
     Dosage: UNK
  4. TYGACIL [Suspect]
     Active Substance: TIGECYCLINE
     Indication: FUNGAL INFECTION
     Dosage: UNK

REACTIONS (2)
  - Rhabdomyolysis [Recovering/Resolving]
  - Acute kidney injury [Recovering/Resolving]
